FAERS Safety Report 8709607 (Version 7)
Quarter: 2013Q4

REPORT INFORMATION
  Report Type: Spontaneous
  Country: US (occurrence: US)
  Receive Date: 20120806
  Receipt Date: 20131105
  Transmission Date: 20140711
  Serious: Yes (Hospitalization)
  Sender: FDA-Public Use
  Company Number: US-GLAXOSMITHKLINE-A0988179A

PATIENT
  Sex: Male
  Weight: 100.9 kg

DRUGS (1)
  1. AVANDIA [Suspect]
     Indication: DIABETES MELLITUS
     Dosage: 8MG PER DAY
     Route: 048
     Dates: start: 200106, end: 2009

REACTIONS (10)
  - Tremor [Unknown]
  - Dizziness [Unknown]
  - Nausea [Unknown]
  - Fatigue [Unknown]
  - Prostate cancer [Unknown]
  - Renal disorder [Unknown]
  - Blindness [Unknown]
  - Cardiac operation [Unknown]
  - Angina pectoris [Unknown]
  - Heart injury [Unknown]
